APPROVED DRUG PRODUCT: QUETIAPINE FUMARATE
Active Ingredient: QUETIAPINE FUMARATE
Strength: EQ 50MG BASE
Dosage Form/Route: TABLET, EXTENDED RELEASE;ORAL
Application: A209635 | Product #005 | TE Code: AB
Applicant: SCIEGEN PHARMACEUTICALS INC
Approved: Nov 16, 2018 | RLD: No | RS: No | Type: RX